FAERS Safety Report 24635390 (Version 1)
Quarter: 2024Q4

REPORT INFORMATION
  Report Type: Spontaneous
  Country: US (occurrence: US)
  Receive Date: 20241119
  Receipt Date: 20241119
  Transmission Date: 20250114
  Serious: No
  Sender: AMNEAL
  Company Number: US-AMNEAL PHARMACEUTICALS-2024-AMRX-02944

PATIENT
  Sex: Female
  Weight: 49.887 kg

DRUGS (1)
  1. ISOTRETINOIN [Suspect]
     Active Substance: ISOTRETINOIN
     Indication: Acne
     Dosage: 1 TABLETS, 2 /DAY
     Route: 065
     Dates: start: 20240612, end: 202408

REACTIONS (2)
  - Migraine [Unknown]
  - Depression [Unknown]
